FAERS Safety Report 4684377-8 (Version None)
Quarter: 2005Q2

REPORT INFORMATION
  Report Type: 
  Country: None (occurrence: None)
  Receive Date: 20050531
  Receipt Date: 20040823
  Transmission Date: 20051028
  Serious: Yes (Life-Threatening)
  Sender: FDA-Public Use
  Company Number: 200414896US

PATIENT
  Age: 60 Year
  Sex: Female

DRUGS (5)
  1. LOVENOX [Suspect]
     Indication: ACUTE CORONARY SYNDROME
     Dosage: 1 MG/KG BID SC
     Route: 058
     Dates: start: 20040425
  2. INTEGRILIN [Concomitant]
  3. HEPARIN [Concomitant]
  4. ASPIRIN [Concomitant]
  5. BETA BLOCKER [Concomitant]

REACTIONS (2)
  - CORONARY ARTERY THROMBOSIS [None]
  - MYOCARDIAL INFARCTION [None]
